FAERS Safety Report 9081032 (Version 1)
Quarter: 2013Q1

REPORT INFORMATION
  Report Type: Report from Study
  Country: US (occurrence: US)
  Receive Date: 20130130
  Receipt Date: 20130130
  Transmission Date: 20140127
  Serious: No
  Sender: FDA-Public Use
  Company Number: US-ABBOTT-12P-163-0982013-00

PATIENT
  Age: 18 Year
  Sex: Female

DRUGS (3)
  1. HUMIRA [Suspect]
     Indication: CROHN^S DISEASE
     Dates: start: 201202
  2. SPRINTEC [Concomitant]
     Indication: PRODUCT USED FOR UNKNOWN INDICATION
  3. MVI [Concomitant]
     Indication: PRODUCT USED FOR UNKNOWN INDICATION

REACTIONS (2)
  - Costochondritis [Not Recovered/Not Resolved]
  - Nasopharyngitis [Unknown]
